FAERS Safety Report 5211031-6 (Version None)
Quarter: 2007Q1

REPORT INFORMATION
  Report Type: 
  Country: None (occurrence: None)
  Receive Date: 20070117
  Receipt Date: 20070105
  Transmission Date: 20070707
  Serious: Yes (Other)
  Sender: FDA-Public Use
  Company Number: GB-PFIZER INC-2007002197

PATIENT

DRUGS (1)
  1. LINEZOLID SOLUTION, STERILE [Suspect]
     Indication: ENTEROCOCCAL INFECTION

REACTIONS (1)
  - IMMUNODEFICIENCY [None]
